FAERS Safety Report 6078957-5 (Version None)
Quarter: 2009Q1

REPORT INFORMATION
  Report Type: 
  Country: None (occurrence: None)
  Receive Date: 20090216
  Receipt Date: 20090202
  Transmission Date: 20090719
  Serious: Yes (Hospitalization, Other)
  Sender: FDA-Public Use
  Company Number: DE-ELI_LILLY_AND_COMPANY-DE200901000362

PATIENT
  Sex: Female

DRUGS (5)
  1. FORTEO [Suspect]
     Indication: OSTEOPOROSIS
     Dosage: 20 UG, DAILY (1/D)
     Route: 058
     Dates: start: 20060801, end: 20060101
  2. FORTEO [Suspect]
     Dosage: 20 UG, UNKNOWN
     Route: 065
     Dates: start: 20060101
  3. LANSOPRAZOLE [Concomitant]
     Dosage: UNK MG, UNKNOWN
     Route: 065
  4. FOSAMAX [Concomitant]
     Dosage: UNK, UNKNOWN
     Route: 065
  5. MONO-EMBOLEX /00889602/ [Concomitant]
     Dosage: UNK, UNKNOWN
     Route: 065

REACTIONS (11)
  - ANAEMIA [None]
  - DIABETES MELLITUS [None]
  - HYPERTENSION [None]
  - LUMBAR VERTEBRAL FRACTURE [None]
  - MOBILITY DECREASED [None]
  - OBESITY [None]
  - PHLEBITIS [None]
  - RENAL FAILURE [None]
  - RHEUMATOID ARTHRITIS [None]
  - URINARY TRACT INFECTION [None]
  - UROSEPSIS [None]
